FAERS Safety Report 8030481-6 (Version None)
Quarter: 2012Q1

REPORT INFORMATION
  Report Type: 
  Country: None (occurrence: None)
  Receive Date: 20120105
  Receipt Date: 20111222
  Transmission Date: 20120608
  Serious: No
  Sender: FDA-Public Use
  Company Number: TPA2011A08775

PATIENT
  Age: 63 Year
  Sex: Female

DRUGS (3)
  1. TACROLIMUS [Suspect]
     Indication: RENAL TRANSPLANT
     Dosage: 6 MG (6 MG, 1 IN 1 D) ORAL
     Route: 048
  2. LOW DOSE STEROID (ANABOLIC STEROIDS) [Concomitant]
  3. ULORIC [Suspect]
     Indication: GOUT
     Dosage: 40 MG (40 MG, 1 - 2) ORAL
     Route: 048

REACTIONS (1)
  - DRUG INTERACTION [None]
